FAERS Safety Report 12583235 (Version 3)
Quarter: 2016Q4

REPORT INFORMATION
  Report Type: Report from Study
  Country: JP (occurrence: JP)
  Receive Date: 20160722
  Receipt Date: 20161230
  Transmission Date: 20170207
  Serious: Yes (Death, Hospitalization)
  Sender: FDA-Public Use
  Company Number: JP-B.I. PHARMACEUTICALS,INC./RIDGEFIELD-2016-BI-48131NB

PATIENT
  Age: 71 Year
  Sex: Male
  Weight: 67.8 kg

DRUGS (1)
  1. OFEV [Suspect]
     Active Substance: NINTEDANIB
     Indication: IDIOPATHIC PULMONARY FIBROSIS
     Route: 048
     Dates: start: 20160712, end: 20160715

REACTIONS (4)
  - Altered state of consciousness [Unknown]
  - Hyponatraemia [Recovered/Resolved]
  - Hepatic function abnormal [Fatal]
  - Metastases to liver [Fatal]

NARRATIVE: CASE EVENT DATE: 20160715
